FAERS Safety Report 24360370 (Version 1)
Quarter: 2024Q3

REPORT INFORMATION
  Report Type: Other
  Country: FR (occurrence: FR)
  Receive Date: 20240925
  Receipt Date: 20240925
  Transmission Date: 20241017
  Serious: Yes (Hospitalization)
  Sender: ZYDUS PHARM
  Company Number: None

PATIENT

DRUGS (3)
  1. LEVOFLOXACIN [Suspect]
     Active Substance: LEVOFLOXACIN
     Indication: Arthritis infective
     Dosage: 500 MILLIGRAM, QD
     Route: 048
     Dates: start: 20240209
  2. AZACTAM [Suspect]
     Active Substance: AZTREONAM
     Indication: Arthritis infective
     Dosage: 4 GRAM, QD
     Route: 042
     Dates: start: 20240131
  3. AVIBACTAM SODIUM\CEFTAZIDIME [Suspect]
     Active Substance: AVIBACTAM SODIUM\CEFTAZIDIME
     Indication: Arthritis infective
     Dosage: 6 GRAM, QD
     Route: 042
     Dates: start: 20240131

REACTIONS (1)
  - Gastric ulcer [Recovering/Resolving]

NARRATIVE: CASE EVENT DATE: 20240221
